FAERS Safety Report 6482716-9 (Version None)
Quarter: 2009Q4

REPORT INFORMATION
  Report Type: 
  Country: None (occurrence: None)
  Receive Date: 20091209
  Receipt Date: 20091127
  Transmission Date: 20100525
  Serious: Yes (Death)
  Sender: FDA-Public Use
  Company Number: JP-JNJFOC-20090907579

PATIENT
  Sex: Female

DRUGS (6)
  1. REMICADE [Suspect]
     Indication: RHEUMATOID ARTHRITIS
     Dosage: TOTAL OF 15 INFUSIONS ADMINISTERED
     Route: 042
     Dates: start: 20060601, end: 20080529
  2. METHOTREXATE [Suspect]
     Indication: RHEUMATOID ARTHRITIS
     Route: 048
     Dates: start: 20040101
  3. MAGNESIUM OXIDE [Concomitant]
     Route: 048
  4. AZUCURENIN S [Concomitant]
     Route: 048
  5. EVISTA [Concomitant]
     Indication: OSTEOPOROSIS
     Route: 048
  6. LOBU [Concomitant]
     Indication: ANALGESIC THERAPY
     Route: 048

REACTIONS (1)
  - METASTATIC MALIGNANT MELANOMA [None]
